FAERS Safety Report 7700018-7 (Version None)
Quarter: 2011Q3

REPORT INFORMATION
  Report Type: 
  Country: None (occurrence: None)
  Receive Date: 20110822
  Receipt Date: 20110810
  Transmission Date: 20111222
  Serious: Yes (Hospitalization)
  Sender: FDA-Public Use
  Company Number: JP-JNJFOC-20100109697

PATIENT
  Sex: Male
  Weight: 54 kg

DRUGS (19)
  1. REMICADE [Suspect]
     Route: 042
  2. METHOTREXATE [Suspect]
     Dosage: DOSE REPORTED AS  BETWEEN 6-20 MG/WEEK OVER 1 TO 6 YEARS.
     Route: 048
     Dates: start: 20060401, end: 20080401
  3. PREDNISOLONE [Concomitant]
     Dates: start: 20021028, end: 20080801
  4. REMICADE [Suspect]
     Route: 042
  5. CYCLOPHOSPHAMIDE [Concomitant]
     Dates: start: 20030101, end: 20050101
  6. REMICADE [Suspect]
     Route: 042
  7. REMICADE [Suspect]
     Route: 042
     Dates: start: 20090702
  8. METHOTREXATE [Suspect]
     Route: 048
     Dates: start: 20080401, end: 20080525
  9. REMICADE [Suspect]
     Route: 042
  10. REMICADE [Suspect]
     Route: 042
  11. METHOTREXATE [Suspect]
     Route: 048
     Dates: start: 20080604, end: 20080801
  12. PREDNISOLONE [Concomitant]
     Indication: POLYARTERITIS NODOSA
     Dates: start: 20080801
  13. REMICADE [Suspect]
     Indication: POLYARTERITIS NODOSA
     Dosage: DOSE ALSO REPORTED AS 160 MG., TOTAL INFUSIONS = 8
     Route: 042
     Dates: start: 20080811
  14. METHOTREXATE [Suspect]
     Indication: POLYARTERITIS NODOSA
     Route: 048
     Dates: start: 20080801
  15. CYCLOPHOSPHAMIDE [Concomitant]
     Dates: start: 20050101
  16. REMICADE [Suspect]
     Route: 042
  17. METHOTREXATE [Suspect]
     Route: 048
     Dates: end: 20090807
  18. METHOTREXATE [Suspect]
     Route: 048
  19. METHOTREXATE [Suspect]
     Route: 048
     Dates: start: 20080526, end: 20080603

REACTIONS (2)
  - EPSTEIN-BARR VIRUS ASSOCIATED LYMPHOPROLIFERATIVE DISORDER [None]
  - DIFFUSE LARGE B-CELL LYMPHOMA STAGE IV [None]
